FAERS Safety Report 11164082 (Version 1)
Quarter: 2015Q2

REPORT INFORMATION
  Report Type: Spontaneous
  Country: DE (occurrence: DE)
  Receive Date: 20150604
  Receipt Date: 20150604
  Transmission Date: 20150821
  Serious: No
  Sender: FDA-Public Use
  Company Number: DE-ELI_LILLY_AND_COMPANY-DE201505009094

PATIENT
  Sex: Female

DRUGS (4)
  1. OLANZAPINE. [Suspect]
     Active Substance: OLANZAPINE
     Indication: PRODUCT USED FOR UNKNOWN INDICATION
     Dosage: UNK, UNKNOWN
     Route: 030
     Dates: start: 20150509
  2. OLANZAPINE. [Suspect]
     Active Substance: OLANZAPINE
     Dosage: 5 MG, OTHER
     Route: 048
     Dates: start: 20150509
  3. OLANZAPINE. [Suspect]
     Active Substance: OLANZAPINE
     Dosage: 15 MG, EACH EVENING
     Dates: start: 20150509
  4. OLANZAPINE. [Suspect]
     Active Substance: OLANZAPINE
     Indication: PRODUCT USED FOR UNKNOWN INDICATION
     Dosage: 20 MG, QD
     Route: 048
     Dates: start: 20150418

REACTIONS (17)
  - Increased appetite [Unknown]
  - Visual impairment [Unknown]
  - Micturition urgency [Unknown]
  - Vomiting [Unknown]
  - Overdose [Unknown]
  - Epistaxis [Unknown]
  - Post procedural complication [Unknown]
  - Dizziness [Unknown]
  - Weight increased [Unknown]
  - Balance disorder [Unknown]
  - Rash [Unknown]
  - Bladder disorder [Unknown]
  - Hormone level abnormal [Unknown]
  - Somnolence [Unknown]
  - Dry mouth [Unknown]
  - Nightmare [Unknown]
  - Nausea [Unknown]
